FAERS Safety Report 24118875 (Version 1)
Quarter: 2024Q3

REPORT INFORMATION
  Report Type: Spontaneous
  Country: US (occurrence: None)
  Receive Date: 20240718
  Receipt Date: 20240718
  Transmission Date: 20241017
  Serious: Yes (Hospitalization)
  Sender: Public
  Company Number: None

PATIENT
  Age: 45 Year
  Sex: Female

DRUGS (1)
  1. EXEMESTANE [Suspect]
     Active Substance: EXEMESTANE

REACTIONS (5)
  - Hot flush [None]
  - Weight increased [None]
  - Treatment noncompliance [None]
  - Illness [None]
  - Cough [None]

NARRATIVE: CASE EVENT DATE: 20240716
